FAERS Safety Report 13580849 (Version 1)
Quarter: 2017Q2

REPORT INFORMATION
  Report Type: Spontaneous
  Country: IL (occurrence: IL)
  Receive Date: 20170525
  Receipt Date: 20170525
  Transmission Date: 20170830
  Serious: Yes (Other)
  Sender: FDA-Public Use
  Company Number: IL-UNICHEM LABORATORIES LIMITED-UCM201705-000141

PATIENT
  Age: 36 Year
  Sex: Male

DRUGS (6)
  1. DIVALPROEX SODIUM. [Suspect]
     Active Substance: DIVALPROEX SODIUM
  2. DIVALPROEX SODIUM. [Suspect]
     Active Substance: DIVALPROEX SODIUM
  3. TOPIRAMATE. [Suspect]
     Active Substance: TOPIRAMATE
  4. DIVALPROEX SODIUM. [Suspect]
     Active Substance: DIVALPROEX SODIUM
  5. CLONAZEPAM. [Concomitant]
     Active Substance: CLONAZEPAM
  6. OXCARBAZEPINE. [Concomitant]
     Active Substance: OXCARBAZEPINE

REACTIONS (10)
  - Drug ineffective [Unknown]
  - Asterixis [Recovering/Resolving]
  - Hyperammonaemia [Recovering/Resolving]
  - Fall [Recovering/Resolving]
  - Drug interaction [Unknown]
  - Mental disorder [Recovering/Resolving]
  - Gait disturbance [Recovering/Resolving]
  - Somnolence [Unknown]
  - Encephalopathy [Unknown]
  - Abdominal discomfort [Unknown]
